FAERS Safety Report 19740522 (Version 1)
Quarter: 2021Q3

REPORT INFORMATION
  Report Type: Spontaneous
  Country: DE (occurrence: DE)
  Receive Date: 20210824
  Receipt Date: 20210824
  Transmission Date: 20211014
  Serious: Yes (Hospitalization)
  Sender: FDA-Public Use
  Company Number: DE-ACCORD-236109

PATIENT
  Age: 60 Year
  Sex: Female

DRUGS (9)
  1. METAMIZOLE SODIUM [Concomitant]
     Active Substance: METAMIZOLE SODIUM
     Dosage: 30 GTT, 1?1?1?1, DROPS
     Route: 048
  2. RAMUCIRUMAB [Suspect]
     Active Substance: RAMUCIRUMAB
     Indication: PRODUCT USED FOR UNKNOWN INDICATION
     Dosage: ACCORDING TO PLAN
     Route: 042
  3. MCP?1A PHARMA [Concomitant]
     Dosage: 10 MG, UP TO THREE TIMES IN CASE OF NAUSEA, TABLETS
     Route: 048
  4. ESOMEP [Concomitant]
     Active Substance: ESOMEPRAZOLE
     Dosage: 20 MG, 1?0?0?0
     Route: 048
  5. ROTEXMEDICA [Concomitant]
     Dosage: 0.1 MG, UP TO SIX TIMES A DAY
     Route: 060
  6. ONDANSETRON ABZ [Concomitant]
     Active Substance: ONDANSETRON
     Dosage: 8 MG, UP TO TWICE IF MCP IS INSUFFICIENT
     Route: 060
  7. PACLITAXEL/PACLITAXEL LIPOSOME [Suspect]
     Active Substance: PACLITAXEL
     Indication: PRODUCT USED FOR UNKNOWN INDICATION
     Route: 042
  8. FENTANYL?1A PHARMA [Concomitant]
     Dosage: CHANGE EVERY 3 DAYS
     Route: 062
  9. ULTIBRO BREEZHALER [Concomitant]
     Active Substance: GLYCOPYRRONIUM\INDACATEROL
     Dosage: 85MICROGRAMS / 43MICROGRAMS, 1?0?0?0, METERED DOSE INHALER
     Route: 055

REACTIONS (3)
  - Application site erythema [Unknown]
  - Pain [Unknown]
  - Condition aggravated [Unknown]
